FAERS Safety Report 4861467-8 (Version None)
Quarter: 2005Q4

REPORT INFORMATION
  Report Type: 
  Country: None (occurrence: None)
  Receive Date: 20051220
  Receipt Date: 20051215
  Transmission Date: 20060501
  Serious: Yes (Other)
  Sender: FDA-Public Use
  Company Number: PR-JNJFOC-20051203678

PATIENT
  Sex: Male

DRUGS (1)
  1. VIADUR [Suspect]
     Indication: PROSTATE CANCER
     Route: 058

REACTIONS (1)
  - CEREBROVASCULAR ACCIDENT [None]
